FAERS Safety Report 17390233 (Version 1)
Quarter: 2020Q1

REPORT INFORMATION
  Report Type: Spontaneous
  Country: US (occurrence: US)
  Receive Date: 20200207
  Receipt Date: 20200207
  Transmission Date: 20200409
  Serious: Yes (Other)
  Sender: FDA-Public Use
  Company Number: US-009507513-2001USA011007

PATIENT
  Age: 26 Year
  Sex: Female
  Weight: 180 kg

DRUGS (1)
  1. NEXPLANON [Suspect]
     Active Substance: ETONOGESTREL
     Dosage: LEFT ARM IMPLANT - FREQUENCY: 3 YEARS
     Route: 059

REACTIONS (2)
  - Device dislocation [Unknown]
  - Medical device site injury [Recovered/Resolved]

NARRATIVE: CASE EVENT DATE: 20200128
